FAERS Safety Report 5677339-5 (Version None)
Quarter: 2008Q1

REPORT INFORMATION
  Report Type: 
  Country: None (occurrence: None)
  Receive Date: 20080318
  Receipt Date: 20080310
  Transmission Date: 20080703
  Serious: Yes (Other)
  Sender: FDA-Public Use
  Company Number: 2008EU000506

PATIENT
  Age: 84 Year
  Sex: Male

DRUGS (1)
  1. VESICARE [Suspect]
     Indication: INCONTINENCE
     Dosage: /D, ORAL
     Route: 048

REACTIONS (1)
  - SOMNOLENCE [None]
